FAERS Safety Report 16400761 (Version 1)
Quarter: 2019Q2

REPORT INFORMATION
  Report Type: Spontaneous
  Country: FR (occurrence: FR)
  Receive Date: 20190606
  Receipt Date: 20190606
  Transmission Date: 20190711
  Serious: Yes (Hospitalization)
  Sender: FDA-Public Use
  Company Number: FR-MYLANLABS-2019M1053604

PATIENT
  Age: 20 Year
  Sex: Male
  Weight: 62 kg

DRUGS (2)
  1. BISOCE [Suspect]
     Active Substance: BISOPROLOL
     Indication: MYOCARDITIS
     Dosage: 2.5 MILLIGRAM, QD
     Route: 048
     Dates: start: 20180604, end: 20180902
  2. COLCHICINE OPOCALCIUM [Suspect]
     Active Substance: COLCHICINE
     Indication: MYOCARDITIS
     Dosage: 0.5 MILLIGRAM, QD
     Route: 048
     Dates: start: 20180604, end: 20180902

REACTIONS (2)
  - Myalgia [Recovered/Resolved]
  - Rhabdomyolysis [Recovered/Resolved]

NARRATIVE: CASE EVENT DATE: 201809
